FAERS Safety Report 19095929 (Version 2)
Quarter: 2021Q2

REPORT INFORMATION
  Report Type: Report from Study
  Country: GB (occurrence: GB)
  Receive Date: 20210406
  Receipt Date: 20210615
  Transmission Date: 20210717
  Serious: Yes (Hospitalization)
  Sender: FDA-Public Use
  Company Number: NVSC2021GB073015

PATIENT
  Sex: Female

DRUGS (1)
  1. COSENTYX [Suspect]
     Active Substance: SECUKINUMAB
     Indication: ANKYLOSING SPONDYLITIS
     Dosage: 300 MG, QMO
     Route: 065
     Dates: start: 20181207

REACTIONS (5)
  - Mitral valve disease [Unknown]
  - Malignant melanoma [Unknown]
  - Therapeutic product effect decreased [Unknown]
  - Arthritis [Unknown]
  - Hypoacusis [Unknown]
